FAERS Safety Report 4321020-1 (Version None)
Quarter: 2004Q1

REPORT INFORMATION
  Report Type: 
  Country: None (occurrence: None)
  Receive Date: 20040303
  Receipt Date: 20030730
  Transmission Date: 20041129
  Serious: Yes (Hospitalization)
  Sender: FDA-Public Use
  Company Number: 2003SA000131

PATIENT
  Age: 34 Year
  Sex: Female

DRUGS (4)
  1. THYMOGLOBULIN [Suspect]
     Indication: MYELODYSPLASTIC SYNDROME
     Dosage: 1.5 MG/KG X1 INTRAVENOUS
     Route: 042
     Dates: start: 20030714, end: 20030714
  2. TYLENOL (CAPLET) [Concomitant]
  3. BENADRYL [Concomitant]
  4. DEXAMETHASONE [Concomitant]

REACTIONS (5)
  - COMA [None]
  - HYPOTENSION [None]
  - HYPOXIA [None]
  - LUNG INFILTRATION [None]
  - RESPIRATORY DISTRESS [None]
